FAERS Safety Report 4988516-0 (Version None)
Quarter: 2006Q2

REPORT INFORMATION
  Report Type: 
  Country: None (occurrence: None)
  Receive Date: 20060502
  Receipt Date: 20060426
  Transmission Date: 20061013
  Serious: Yes (Hospitalization)
  Sender: FDA-Public Use
  Company Number: AU-AMGEN-US177692

PATIENT
  Age: 79 Year
  Sex: Male

DRUGS (6)
  1. NEULASTA [Suspect]
     Indication: CHEMOTHERAPY
     Route: 065
     Dates: start: 20060407
  2. CYCLOPHOSPHAMIDE [Concomitant]
     Route: 065
     Dates: start: 20060406
  3. DOXORUBICIN HCL [Concomitant]
     Route: 065
     Dates: start: 20060406
  4. VINBLASTINE SULFATE [Concomitant]
     Route: 065
     Dates: start: 20060406
  5. PREDNISONE TAB [Concomitant]
     Route: 065
     Dates: start: 20060406
  6. RITUXAN [Concomitant]
     Route: 065
     Dates: start: 20060406

REACTIONS (1)
  - NEUTROPENIC SEPSIS [None]
